FAERS Safety Report 21251372 (Version 1)
Quarter: 2022Q3

REPORT INFORMATION
  Report Type: Spontaneous
  Country: BE (occurrence: None)
  Receive Date: 20220825
  Receipt Date: 20220825
  Transmission Date: 20221026
  Serious: Yes (Other)
  Sender: FDA-Public Use
  Company Number: BE-MICRO LABS LIMITED-ML2022-04273

PATIENT
  Age: 52 Year
  Sex: Male

DRUGS (1)
  1. OLMESARTAN MEDOXOMIL [Suspect]
     Active Substance: OLMESARTAN MEDOXOMIL

REACTIONS (2)
  - Cutaneous vasculitis [Recovered/Resolved]
  - Sprue-like enteropathy [Recovered/Resolved]
